FAERS Safety Report 7689703-3 (Version None)
Quarter: 2011Q3

REPORT INFORMATION
  Report Type: 
  Country: None (occurrence: None)
  Receive Date: 20110817
  Receipt Date: 20110803
  Transmission Date: 20111222
  Serious: Yes (Hospitalization)
  Sender: FDA-Public Use
  Company Number: DE-CELGENEUS-062-20785-11080659

PATIENT
  Age: 42 Year
  Sex: Female

DRUGS (7)
  1. COTRIM [Suspect]
     Route: 065
  2. MELPHALAN HYDROCHLORIDE [Suspect]
     Dosage: 70 MILLIGRAM
     Route: 065
  3. PASPERTIN [Suspect]
     Route: 065
  4. THALIDOMIDE [Suspect]
     Indication: MULTIPLE MYELOMA
     Dosage: 100 MILLIGRAM
     Route: 048
     Dates: start: 20100721
  5. MELPHALAN HYDROCHLORIDE [Suspect]
     Indication: MULTIPLE MYELOMA
     Dosage: 100 MILLIGRAM
     Route: 065
  6. ATG-FRESENIUS S [Suspect]
     Indication: MULTIPLE MYELOMA
     Dosage: 20 MILLIGRAM/KILOGRAM
     Route: 065
  7. FOSCARNET [Concomitant]
     Route: 065

REACTIONS (3)
  - HERPES SIMPLEX [None]
  - GRAFT VERSUS HOST DISEASE [None]
  - RASH [None]
